FAERS Safety Report 11700160 (Version 1)
Quarter: 2015Q4

REPORT INFORMATION
  Report Type: Spontaneous
  Country: US (occurrence: US)
  Receive Date: 20151105
  Receipt Date: 20151105
  Transmission Date: 20160304
  Serious: Yes (Other)
  Sender: FDA-Public Use
  Company Number: US-JNJFOC-20151017263

PATIENT
  Age: 62 Year
  Sex: Female
  Weight: 99.79 kg

DRUGS (2)
  1. TYLENOL EXTRA STRENGTH [Suspect]
     Active Substance: ACETAMINOPHEN
     Indication: BACK PAIN
     Dosage: ONCE IN THE MORNING AND THEN LATER IN THE DAY
     Route: 048
  2. TYLENOL EXTRA STRENGTH [Suspect]
     Active Substance: ACETAMINOPHEN
     Indication: BACK PAIN
     Route: 048

REACTIONS (13)
  - Haematochezia [Recovered/Resolved]
  - Urticaria [None]
  - Liver injury [None]
  - Abdominal discomfort [None]
  - Back pain [Recovered/Resolved]
  - Swollen tongue [None]
  - Wheezing [Recovered/Resolved]
  - Swelling face [None]
  - Abdominal pain upper [Recovered/Resolved]
  - Feeling abnormal [Recovered/Resolved]
  - Epigastric discomfort [None]
  - Gastrointestinal pain [None]
  - Gait disturbance [None]
